FAERS Safety Report 5313390-2 (Version None)
Quarter: 2007Q2

REPORT INFORMATION
  Report Type: 
  Country: None (occurrence: None)
  Receive Date: 20070427
  Receipt Date: 20070427
  Transmission Date: 20071010
  Serious: Yes (Hospitalization)
  Sender: FDA-Public Use
  Company Number: None

PATIENT
  Sex: Male
  Weight: 95 kg

DRUGS (3)
  1. CYTARABINE [Suspect]
     Dosage: 1470 MG
     Dates: end: 20070411
  2. DAUNORUBICIN HCL [Suspect]
     Dosage: 570 MG
     Dates: end: 20070407
  3. ETOPOSIDE [Suspect]
     Dosage: 630 MG
     Dates: end: 20070407

REACTIONS (15)
  - BACTERIAL INFECTION [None]
  - BLOOD CULTURE POSITIVE [None]
  - CARDIAC DISORDER [None]
  - CELLULITIS [None]
  - DYSPNOEA [None]
  - HAEMATURIA [None]
  - HYPERTENSION [None]
  - HYPOXIA [None]
  - INFUSION SITE REACTION [None]
  - PALMAR-PLANTAR ERYTHRODYSAESTHESIA SYNDROME [None]
  - PULMONARY OEDEMA [None]
  - SALIVARY HYPERSECRETION [None]
  - STAPHYLOCOCCAL INFECTION [None]
  - STOMATITIS [None]
  - TACHYCARDIA [None]
